FAERS Safety Report 9322733 (Version 3)
Quarter: 2013Q2

REPORT INFORMATION
  Report Type: Report from Study
  Country: FR (occurrence: FR)
  Receive Date: 20130601
  Receipt Date: 20130626
  Transmission Date: 20140414
  Serious: Yes (Hospitalization)
  Sender: FDA-Public Use
  Company Number: FR-ROCHE-1227740

PATIENT
  Age: 79 Year
  Sex: Male
  Weight: 70 kg

DRUGS (7)
  1. ZELBORAF [Suspect]
     Indication: PRODUCT USED FOR UNKNOWN INDICATION
     Dosage: RECEIVED OF 4 TABLET IN THE MORNING AND 4 TABLET IN THE EVENING
     Route: 048
     Dates: start: 20130402
  2. ZELBORAF [Suspect]
     Dosage: 3 TABLET
     Route: 048
  3. PRIMPERAN (FRANCE) [Concomitant]
     Indication: VOMITING
     Route: 048
     Dates: start: 20130311
  4. INEXIUM [Concomitant]
     Indication: PROPHYLAXIS AGAINST GASTROINTESTINAL ULCER
     Route: 048
     Dates: start: 20130311
  5. ALFUZOSIN [Concomitant]
     Route: 048
     Dates: start: 20130311
  6. ZOLPIDEM [Concomitant]
     Indication: SLEEP DISORDER
     Route: 048
     Dates: start: 20130311
  7. IXPRIM [Concomitant]
     Indication: PAIN
     Route: 065
     Dates: start: 20130311

REACTIONS (3)
  - Acne [Recovered/Resolved]
  - Skin disorder [Unknown]
  - Pyrexia [Unknown]
